FAERS Safety Report 6158593-2 (Version None)
Quarter: 2009Q2

REPORT INFORMATION
  Report Type: 
  Country: None (occurrence: None)
  Receive Date: 20090415
  Receipt Date: 20090402
  Transmission Date: 20091009
  Serious: Yes (Death)
  Sender: FDA-Public Use
  Company Number: AE-2009-001

PATIENT
  Age: 40 Year
  Sex: Female

DRUGS (1)
  1. FAZACLO ODT [Suspect]
     Dosage: 300 MG QHS PO
     Route: 048
     Dates: start: 20060526, end: 20081117

REACTIONS (1)
  - DEATH [None]
